FAERS Safety Report 7687065-9 (Version None)
Quarter: 2011Q3

REPORT INFORMATION
  Report Type: 
  Country: None (occurrence: None)
  Receive Date: 20110816
  Receipt Date: 20110812
  Transmission Date: 20111222
  Serious: Yes (Other)
  Sender: FDA-Public Use
  Company Number: US-PFIZER INC-2011186234

PATIENT
  Sex: Female
  Weight: 57 kg

DRUGS (5)
  1. EFFEXOR [Suspect]
     Dosage: 225 MG, DAILY
     Route: 048
  2. EFFEXOR [Suspect]
     Dosage: 225 MG, UNK
     Route: 048
     Dates: end: 20110811
  3. ABILIFY [Concomitant]
     Indication: BIPOLAR DISORDER
     Dosage: 10 MG
  4. EFFEXOR [Suspect]
     Indication: NARCOLEPSY
     Dosage: 37.5 MG, DAILY
     Route: 048
     Dates: start: 20110101
  5. ADDERALL 5 [Concomitant]
     Indication: NARCOLEPSY
     Dosage: 40 TO 80 MG DAILY
     Dates: start: 20100101

REACTIONS (5)
  - FEELING ABNORMAL [None]
  - ANXIETY [None]
  - MUSCLE TWITCHING [None]
  - MOTOR DYSFUNCTION [None]
  - PALPITATIONS [None]
